FAERS Safety Report 14009549 (Version 1)
Quarter: 2017Q3

REPORT INFORMATION
  Report Type: Spontaneous
  Country: US (occurrence: US)
  Receive Date: 20170925
  Receipt Date: 20170925
  Transmission Date: 20171128
  Serious: Yes (Death, Hospitalization, Other)
  Sender: FDA-Public Use
  Company Number: US-SA-2017SA174419

PATIENT
  Age: 77 Year
  Sex: Female

DRUGS (2)
  1. SOLOSTAR [Suspect]
     Active Substance: DEVICE
     Indication: TYPE 2 DIABETES MELLITUS
     Dates: start: 2007, end: 201705
  2. LANTUS SOLOSTAR [Suspect]
     Active Substance: INSULIN GLARGINE
     Indication: TYPE 2 DIABETES MELLITUS
     Dosage: DOSE: INITIALLY HIGHER BUT 14 U NEAR THE END
     Route: 058
     Dates: start: 2007, end: 201705

REACTIONS (5)
  - Blood pressure decreased [Unknown]
  - Myocardial infarction [Unknown]
  - Renal failure [Fatal]
  - Cardiac failure [Fatal]
  - Cardiac failure congestive [Unknown]
